FAERS Safety Report 9197304 (Version 1)
Quarter: 2013Q1

REPORT INFORMATION
  Report Type: Spontaneous
  Country: US (occurrence: US)
  Receive Date: 20130328
  Receipt Date: 20130328
  Transmission Date: 20140127
  Serious: Yes (Other)
  Sender: FDA-Public Use
  Company Number: US-BAYER-2013-035314

PATIENT
  Age: 23 Year
  Sex: Female

DRUGS (6)
  1. YAZ [Suspect]
  2. TRAMADOL [Concomitant]
  3. OXAPROZIN [Concomitant]
  4. AMOXICILLIN [Concomitant]
  5. INDOMETHACIN [Concomitant]
  6. NAPROXEN [Concomitant]
     Dosage: UNK UNK, PRN

REACTIONS (2)
  - Deep vein thrombosis [Recovered/Resolved]
  - Deep vein thrombosis [None]
